FAERS Safety Report 6543325-6 (Version None)
Quarter: 2010Q1

REPORT INFORMATION
  Report Type: 
  Country: None (occurrence: None)
  Receive Date: 20100120
  Receipt Date: 20100114
  Transmission Date: 20100710
  Serious: Yes (Death)
  Sender: FDA-Public Use
  Company Number: JP-ROCHE-679786

PATIENT
  Sex: Female
  Weight: 55 kg

DRUGS (19)
  1. TOCILIZUMAB [Suspect]
     Indication: RHEUMATOID ARTHRITIS
     Route: 041
     Dates: start: 20090120, end: 20090120
  2. TOCILIZUMAB [Suspect]
     Route: 041
     Dates: start: 20090217, end: 20090217
  3. TOCILIZUMAB [Suspect]
     Route: 041
     Dates: start: 20090317, end: 20090317
  4. TOCILIZUMAB [Suspect]
     Route: 041
     Dates: start: 20090414, end: 20090414
  5. TOCILIZUMAB [Suspect]
     Route: 041
     Dates: start: 20090512, end: 20090512
  6. TOCILIZUMAB [Suspect]
     Route: 041
     Dates: start: 20090619, end: 20090619
  7. TOCILIZUMAB [Suspect]
     Route: 041
     Dates: start: 20090717, end: 20090717
  8. ARAVA [Concomitant]
     Route: 048
     Dates: end: 20090826
  9. PREDNISOLONE [Concomitant]
     Dosage: FORM: ORAL FORMULATION (NOT OTHERWISE SPECIFIED)
     Route: 048
     Dates: end: 20090826
  10. INFREE [Concomitant]
     Route: 048
     Dates: end: 20090101
  11. OLMETEC [Concomitant]
     Route: 048
     Dates: end: 20090101
  12. CALBLOCK [Concomitant]
     Route: 048
     Dates: end: 20090826
  13. INDAPAMIDE [Concomitant]
     Dosage: DRUG NAME: NATRIX
     Route: 048
  14. INDAPAMIDE [Concomitant]
     Dosage: DRUG NAME: NATRIX
     Route: 048
     Dates: start: 20090819, end: 20090826
  15. JUVELA N [Concomitant]
     Route: 048
     Dates: end: 20090101
  16. MOHRUS [Concomitant]
     Dosage: FORM: TAPE  DRUG NAME:MOHRUS TAPE
     Route: 061
     Dates: end: 20090101
  17. GASTER D [Concomitant]
     Route: 048
     Dates: end: 20090101
  18. BENET [Concomitant]
     Route: 048
     Dates: end: 20090101
  19. FLOMOX [Concomitant]
     Route: 048
     Dates: start: 20090717, end: 20090726

REACTIONS (1)
  - SEPSIS [None]
